FAERS Safety Report 19370590 (Version 1)
Quarter: 2021Q2

REPORT INFORMATION
  Report Type: Spontaneous
  Country: BR (occurrence: BR)
  Receive Date: 20210604
  Receipt Date: 20210604
  Transmission Date: 20210717
  Serious: Yes (Hospitalization, Other)
  Sender: FDA-Public Use
  Company Number: BR-ABBVIE-21P-020-3932649-00

PATIENT
  Age: 12 Year
  Sex: Female
  Weight: 26 kg

DRUGS (7)
  1. VODSSO 250 MILIGRAM [Suspect]
     Active Substance: VALPROIC ACID
     Indication: EPILEPSY
     Dosage: DAILY DOSE: 360 MG
     Route: 050
  2. TOPIRAMATE. [Concomitant]
     Active Substance: TOPIRAMATE
     Indication: PRODUCT USED FOR UNKNOWN INDICATION
     Dosage: DAILY DOSE: 25 MG; ADMINISTERED VIA NASOENTERAL PROBE
     Route: 050
  3. FUROSEMIDE. [Concomitant]
     Active Substance: FUROSEMIDE
     Indication: ELECTROLYTE IMBALANCE
     Dosage: DAILY DOSE: 2.4 ML; ADMINISTERED VIA NASOENTERAL PROBE
     Route: 050
     Dates: start: 20210407
  4. BIOTINE [BIOTIN] [Concomitant]
     Active Substance: BIOTIN
     Indication: INFANTILE SPASMS
     Dosage: DAILY: 1 ML; ADMINISTERED VIA NASOENTERAL PROBE
     Route: 050
     Dates: start: 20210417
  5. PYRIDOXINE [Concomitant]
     Active Substance: PYRIDOXINE
     Indication: INFANTILE SPASMS
     Dosage: DAILY DOSE: 1ML; ADMINISTERED VIA NASOENTERAL PROBE
     Route: 050
     Dates: start: 20210417
  6. LEVOTHYROXINE. [Concomitant]
     Active Substance: LEVOTHYROXINE
     Indication: HYPOTHYROIDISM
     Dosage: ADMINISTERED VIA NASOENTERAL PROBE
     Route: 050
  7. FOLINIC ACID [Concomitant]
     Active Substance: LEUCOVORIN
     Indication: INFANTILE SPASMS
     Dosage: DAILY DOSE: 1 ML; ADMINISTERED VIA NASOENTERAL PROBE
     Route: 050
     Dates: start: 20210417

REACTIONS (5)
  - Post procedural haemorrhage [Unknown]
  - Intensive care [Unknown]
  - Blood potassium abnormal [Unknown]
  - Product preparation issue [Unknown]
  - Incorrect route of product administration [Unknown]

NARRATIVE: CASE EVENT DATE: 20210513
